FAERS Safety Report 22197901 (Version 1)
Quarter: 2023Q2

REPORT INFORMATION
  Report Type: Spontaneous
  Country: US (occurrence: None)
  Receive Date: 20230411
  Receipt Date: 20230411
  Transmission Date: 20230722
  Serious: No
  Sender: FDA-Public Use
  Company Number: None

PATIENT
  Age: 81 Year
  Sex: Female
  Weight: 57.15 kg

DRUGS (10)
  1. GABAPENTIN [Suspect]
     Active Substance: GABAPENTIN
     Indication: Pain
     Dosage: 1 CAPSULE AT BEDTIME ORAL
     Route: 048
  2. TRAMADOL [Concomitant]
     Active Substance: TRAMADOL
  3. ARMOUR THYROID [Concomitant]
     Active Substance: THYROID, PORCINE
  4. ROSUVASTATIN [Concomitant]
     Active Substance: ROSUVASTATIN
  5. AMLODIPINE [Concomitant]
     Active Substance: AMLODIPINE BESYLATE
  6. Lisinorpil [Concomitant]
  7. VITAMIN D [Concomitant]
     Active Substance: VITAMIN D NOS
  8. Dindolylmethane [Concomitant]
  9. purely inspired organic protein drink [Concomitant]
  10. COLLAGEN [Concomitant]
     Active Substance: COLLAGEN

REACTIONS (3)
  - Diplopia [None]
  - Hypotension [None]
  - Vomiting [None]

NARRATIVE: CASE EVENT DATE: 20230330
